FAERS Safety Report 15090860 (Version 1)
Quarter: 2018Q3

REPORT INFORMATION
  Report Type: Spontaneous
  Country: DE (occurrence: DE)
  Receive Date: 20180629
  Receipt Date: 20180629
  Transmission Date: 20181010
  Serious: Yes (Other)
  Sender: FDA-Public Use
  Company Number: DE-DRREDDYS-GER/GER/18/0100906

PATIENT
  Age: 18 Year
  Sex: Female
  Weight: 55 kg

DRUGS (6)
  1. RANIBETA 150 [Suspect]
     Active Substance: RANITIDINE HYDROCHLORIDE
     Indication: PRODUCT USED FOR UNKNOWN INDICATION
     Route: 048
  2. RANIBETA 150 [Suspect]
     Active Substance: RANITIDINE HYDROCHLORIDE
     Dosage: 30 TABLETS MAXIMUM
     Route: 048
     Dates: start: 20180614, end: 20180614
  3. CITALOPRAM [Suspect]
     Active Substance: CITALOPRAM HYDROBROMIDE
     Indication: PRODUCT USED FOR UNKNOWN INDICATION
     Route: 048
  4. DESLORATADIN 5MG GLENMARK [Suspect]
     Active Substance: DESLORATADINE
     Indication: PRODUCT USED FOR UNKNOWN INDICATION
     Route: 048
  5. DESLORATADIN 5MG GLENMARK [Suspect]
     Active Substance: DESLORATADINE
     Dosage: 30 TABLETS MAXIMUM
     Route: 048
     Dates: start: 20180614, end: 20180614
  6. CITALOPRAM [Suspect]
     Active Substance: CITALOPRAM HYDROBROMIDE
     Dosage: 40 TABLETS MAXIMUM
     Route: 048
     Dates: start: 20180614, end: 20180614

REACTIONS (5)
  - Somnolence [Unknown]
  - Sinus tachycardia [Unknown]
  - Intentional overdose [Unknown]
  - Nausea [Unknown]
  - Systolic hypertension [Unknown]

NARRATIVE: CASE EVENT DATE: 20180614
